FAERS Safety Report 6086392-9 (Version None)
Quarter: 2009Q1

REPORT INFORMATION
  Report Type: 
  Country: None (occurrence: None)
  Receive Date: 20090220
  Receipt Date: 20081224
  Transmission Date: 20090719
  Serious: Yes (Other)
  Sender: FDA-Public Use
  Company Number: US-JNJCH-2008056238

PATIENT
  Sex: Male
  Weight: 81.6 kg

DRUGS (1)
  1. ROGAINE [Suspect]
     Indication: ALOPECIA
     Dosage: TEXT:1/2 CAPFUL ONCE A DAY
     Route: 061

REACTIONS (5)
  - APPLICATION SITE HYPERSENSITIVITY [None]
  - APPLICATION SITE PRURITUS [None]
  - CEREBRAL ISCHAEMIA [None]
  - OEDEMA PERIPHERAL [None]
  - SENSORY DISTURBANCE [None]
